FAERS Safety Report 17295009 (Version 1)
Quarter: 2020Q1

REPORT INFORMATION
  Report Type: Spontaneous
  Country: US (occurrence: US)
  Receive Date: 20200121
  Receipt Date: 20200121
  Transmission Date: 20200409
  Serious: Yes (Hospitalization)
  Sender: FDA-Public Use
  Company Number: US-PRINSTON PHARMACEUTICAL INC.-2020PRN00020

PATIENT
  Age: 51 Year
  Sex: Male
  Weight: 85 kg

DRUGS (4)
  1. LISINOPRIL. [Suspect]
     Active Substance: LISINOPRIL
     Dosage: 10 MG, 1X/DAY (TWO 5-MG TABLETS)
     Route: 065
  2. LISINOPRIL. [Suspect]
     Active Substance: LISINOPRIL
     Dosage: 27 LISINOPRIL 10-MG TABLETS (3.18 MG/KG)
     Route: 048
  3. HYDROCODONE BITARTRATE 5-MG WITH ACETAMINOPHEN 325-MG [Concomitant]
     Route: 065
  4. ALPRAZOLAM. [Concomitant]
     Active Substance: ALPRAZOLAM
     Dosage: 0.5 MG
     Route: 065

REACTIONS (10)
  - Electrocardiogram QRS complex prolonged [Recovered/Resolved]
  - Hallucination, visual [Recovered/Resolved]
  - Incoherent [Recovered/Resolved]
  - Rhabdomyolysis [Recovered/Resolved]
  - Lethargy [Recovered/Resolved]
  - Metabolic acidosis [Recovered/Resolved]
  - Confusional state [Recovered/Resolved]
  - Acute kidney injury [Recovered/Resolved]
  - Multiple organ dysfunction syndrome [Recovered/Resolved]
  - Intentional overdose [Recovered/Resolved]
